FAERS Safety Report 8098119-X (Version None)
Quarter: 2012Q1

REPORT INFORMATION
  Report Type: 
  Country: None (occurrence: None)
  Receive Date: 20120128
  Receipt Date: 20110817
  Transmission Date: 20120608
  Serious: No
  Sender: FDA-Public Use
  Company Number: US-ABBOTT-11P-163-0847621-00

PATIENT
  Sex: Female

DRUGS (12)
  1. CALCIUM [Concomitant]
     Indication: MINERAL SUPPLEMENTATION
  2. HUMIRA [Suspect]
     Indication: PSORIASIS
     Dates: start: 20081001
  3. TRAMADOL HCL [Concomitant]
     Indication: PAIN
     Dosage: 50 MG- 2 TID
     Route: 048
  4. OXYTETRACYCLINE [Concomitant]
     Indication: ROSACEA
     Dosage: EVERY OTHER DAY
  5. MULTI-VITAMINS [Concomitant]
     Indication: PRODUCT USED FOR UNKNOWN INDICATION
  6. VICODIN [Concomitant]
     Indication: PAIN
     Dosage: 5/500MG, USUALLY NEEDS 1DAILY
     Route: 048
  7. LOVAZA [Concomitant]
     Indication: PRODUCT USED FOR UNKNOWN INDICATION
  8. OMEPRAZOLE [Concomitant]
     Indication: GASTRITIS
     Dosage: PRN
     Route: 048
  9. CARDIZEM [Concomitant]
     Indication: BLOOD PRESSURE INCREASED
     Dosage: DAILY
     Route: 048
     Dates: start: 20110815
  10. DIPROLENE [Concomitant]
     Indication: PRODUCT USED FOR UNKNOWN INDICATION
     Dosage: PRN
  11. TACLONEX [Concomitant]
     Indication: PRODUCT USED FOR UNKNOWN INDICATION
     Dosage: PRN
     Route: 061
  12. VITAMIN D [Concomitant]
     Indication: PRODUCT USED FOR UNKNOWN INDICATION

REACTIONS (1)
  - INJECTION SITE PAIN [None]
